FAERS Safety Report 14567107 (Version 1)
Quarter: 2018Q1

REPORT INFORMATION
  Report Type: Spontaneous
  Country: US (occurrence: US)
  Receive Date: 20180222
  Receipt Date: 20180222
  Transmission Date: 20180509
  Serious: Yes (Disabling, Other)
  Sender: FDA-Public Use
  Company Number: None

PATIENT
  Age: 33 Year
  Sex: Female
  Weight: 55.98 kg

DRUGS (8)
  1. CIPROFLOXACIN 500 [Suspect]
     Active Substance: CIPROFLOXACIN
     Indication: INFECTION
     Dosage: ?          QUANTITY:1 TABLET(S);?
     Route: 048
     Dates: start: 20180212, end: 20180214
  2. VITAMIN D [Concomitant]
     Active Substance: CHOLECALCIFEROL
  3. GLUCOSAMINE [Concomitant]
     Active Substance: GLUCOSAMINE
  4. TOPAMAX [Concomitant]
     Active Substance: TOPIRAMATE
  5. RIZATRIPTAN. [Concomitant]
     Active Substance: RIZATRIPTAN
  6. IBUPROFEN. [Concomitant]
     Active Substance: IBUPROFEN
  7. VITAMIN C [Concomitant]
     Active Substance: ASCORBIC ACID
  8. MIGRELIEF [Concomitant]

REACTIONS (6)
  - Abdominal pain upper [None]
  - Pain [None]
  - Crying [None]
  - Pain in extremity [None]
  - Arthralgia [None]
  - Tendon pain [None]

NARRATIVE: CASE EVENT DATE: 20180212
